FAERS Safety Report 6018334-6 (Version None)
Quarter: 2008Q4

REPORT INFORMATION
  Report Type: 
  Country: None (occurrence: None)
  Receive Date: 20081223
  Receipt Date: 20081216
  Transmission Date: 20090506
  Serious: Yes (Hospitalization)
  Sender: FDA-Public Use
  Company Number: HQWYE202420JUL06

PATIENT
  Age: 72 Year
  Sex: Male

DRUGS (11)
  1. CORDARONE [Suspect]
     Indication: ATRIAL FLUTTER
     Dosage: 200 MG TABLET, DOSE UNSPECIFIED
     Route: 048
  2. CORDARONE [Suspect]
     Indication: ATRIAL FIBRILLATION
  3. DIGOXIN [Suspect]
     Indication: ATRIAL FIBRILLATION
     Dosage: UNSPECIFIED
     Route: 048
  4. DIGOXIN [Suspect]
     Indication: ATRIAL FLUTTER
  5. PRAZEPAM [Concomitant]
     Dosage: UNSPECIFIED
     Route: 048
  6. PREVISCAN [Suspect]
     Indication: ATRIAL FIBRILLATION
     Dosage: 20 MG TABLET, DOSE UNSPECIFIED
     Route: 048
  7. PREVISCAN [Suspect]
     Indication: ATRIAL FLUTTER
  8. NOCTRAN 10 [Suspect]
     Indication: SLEEP DISORDER
     Dosage: 10 MG TABLET, DOSE UNSPECIFIED
     Route: 048
  9. SEROPRAM [Concomitant]
     Dosage: UNSPECIFIED
  10. ATARAX [Suspect]
     Indication: ANXIETY
     Dosage: UNSPECIFIED
  11. LASILIX [Suspect]
     Indication: CARDIAC FAILURE
     Dosage: UNSPECIFIED
     Dates: end: 20060101

REACTIONS (4)
  - DRUG ERUPTION [None]
  - LICHENOID KERATOSIS [None]
  - PURPURA [None]
  - RASH ERYTHEMATOUS [None]
